FAERS Safety Report 8808149 (Version 2)
Quarter: 2012Q4

REPORT INFORMATION
  Report Type: 
  Country: US (occurrence: US)
  Receive Date: 20120925
  Receipt Date: 20121015
  Transmission Date: 20130627
  Serious: Yes (Hospitalization, Other)
  Sender: FDA-Public Use
  Company Number: US-CELGENEUS-163-21880-12090651

PATIENT
  Age: 79 Year
  Sex: Male

DRUGS (7)
  1. REVLIMID [Suspect]
     Indication: MYELODYSPLASTIC SYNDROME
     Dosage: 10 Milligram
     Route: 048
     Dates: start: 201208
  2. ASPIRIN [Concomitant]
     Indication: DRUG USE FOR UNKNOWN INDICATION
     Route: 065
  3. CALCIUM [Concomitant]
     Indication: DRUG USE FOR UNKNOWN INDICATION
     Route: 065
  4. EXJADE [Concomitant]
     Indication: DRUG USE FOR UNKNOWN INDICATION
     Route: 065
  5. EYE VITAMINS [Concomitant]
     Indication: DRUG USE FOR UNKNOWN INDICATION
     Route: 065
  6. PACKED RED BLOOD CELLS [Concomitant]
     Indication: TRANSFUSION
     Dosage: 2 units
     Route: 041
  7. HYDROXYUREA [Concomitant]
     Indication: MDS
     Dosage: 500 Milligram
     Route: 048
     Dates: start: 200503, end: 201208

REACTIONS (7)
  - Cardiac flutter [Unknown]
  - Renal failure acute [Recovered/Resolved]
  - Syncope [Recovered/Resolved]
  - Full blood count decreased [Unknown]
  - Rash [Unknown]
  - Nausea [Unknown]
  - Haemoglobin decreased [Unknown]
